FAERS Safety Report 14540143 (Version 1)
Quarter: 2018Q1

REPORT INFORMATION
  Report Type: Spontaneous
  Country: GB (occurrence: GB)
  Receive Date: 20180216
  Receipt Date: 20180216
  Transmission Date: 20180509
  Serious: Yes (Disabling, Other)
  Sender: FDA-Public Use
  Company Number: GB-TEVA-2018-GB-858576

PATIENT
  Age: 57 Year
  Sex: Female
  Weight: 67.58 kg

DRUGS (3)
  1. PIROXICAM. [Suspect]
     Active Substance: PIROXICAM
     Route: 065
  2. DOXEPIN [Concomitant]
     Active Substance: DOXEPIN
  3. SERETIDE [Concomitant]
     Active Substance: FLUTICASONE PROPIONATE\SALMETEROL XINAFOATE

REACTIONS (4)
  - Pruritus generalised [Recovering/Resolving]
  - Dizziness [Recovering/Resolving]
  - Nasal congestion [Recovering/Resolving]
  - Dyspnoea [Recovering/Resolving]

NARRATIVE: CASE EVENT DATE: 201611
